FAERS Safety Report 10627726 (Version 1)
Quarter: 2014Q4

REPORT INFORMATION
  Report Type: Report from Study
  Country: NL (occurrence: NL)
  Receive Date: 20141205
  Receipt Date: 20141205
  Transmission Date: 20150529
  Serious: Yes (Hospitalization, Other)
  Sender: FDA-Public Use
  Company Number: NL-AMGEN-NLDSL2012086765

PATIENT
  Age: 68 Year
  Sex: Female

DRUGS (1)
  1. ARANESP [Suspect]
     Active Substance: DARBEPOETIN ALFA
     Indication: PRODUCT USED FOR UNKNOWN INDICATION
     Dosage: 1 ML (500MCG/ML), Q3WK
     Route: 065
     Dates: start: 20121224, end: 20130408

REACTIONS (8)
  - Haemoglobin decreased [Unknown]
  - Pain [Unknown]
  - Drug ineffective [Unknown]
  - Breast pain [Unknown]
  - Hospitalisation [Unknown]
  - Dyspnoea [Unknown]
  - Somnolence [Unknown]
  - Malnutrition [Unknown]
